FAERS Safety Report 25625969 (Version 2)
Quarter: 2025Q3

REPORT INFORMATION
  Report Type: Spontaneous
  Country: EU (occurrence: EU)
  Receive Date: 20250731
  Receipt Date: 20250825
  Transmission Date: 20251020
  Serious: Yes (Other)
  Sender: AUROBINDO
  Company Number: EU-AUROBINDO-AUR-APL-2025-038692

PATIENT
  Age: 61 Year
  Sex: Male
  Weight: 117 kg

DRUGS (4)
  1. CLOPIDOGREL [Suspect]
     Active Substance: CLOPIDOGREL BISULFATE
     Indication: Myocardial infarction
     Route: 048
     Dates: start: 202506
  2. CLOPIDOGREL [Suspect]
     Active Substance: CLOPIDOGREL BISULFATE
     Indication: Cerebrovascular accident
  3. FELODIPINE [Suspect]
     Active Substance: FELODIPINE
     Indication: Myocardial infarction
     Route: 048
     Dates: start: 202506
  4. FELODIPINE [Suspect]
     Active Substance: FELODIPINE
     Indication: Cerebrovascular accident

REACTIONS (1)
  - Cerebrovascular accident [Not Recovered/Not Resolved]

NARRATIVE: CASE EVENT DATE: 20250707
